FAERS Safety Report 6454424-1 (Version None)
Quarter: 2009Q4

REPORT INFORMATION
  Report Type: 
  Country: None (occurrence: None)
  Receive Date: 20091124
  Receipt Date: 20091111
  Transmission Date: 20100525
  Serious: Yes (Hospitalization, Other)
  Sender: FDA-Public Use
  Company Number: PHHY2009JP49409

PATIENT
  Age: 28 Year
  Sex: Female

DRUGS (3)
  1. CYCLOSPORINE [Suspect]
     Indication: IMMUNOSUPPRESSION
     Dosage: 50 MG/DAY
  2. CYCLOSPORINE [Suspect]
     Indication: COLITIS ULCERATIVE
  3. PREDNISOLONE [Suspect]
     Indication: IMMUNOSUPPRESSION
     Dosage: 15 MG/DAY

REACTIONS (7)
  - ABSCESS DRAINAGE [None]
  - ERYTHEMA [None]
  - NEUTROPHILIA [None]
  - PURPURA [None]
  - RASH PUSTULAR [None]
  - SCEDOSPORIUM INFECTION [None]
  - SUBCUTANEOUS ABSCESS [None]
